FAERS Safety Report 15996256 (Version 2)
Quarter: 2019Q3

REPORT INFORMATION
  Report Type: Report from Study
  Country: US (occurrence: US)
  Receive Date: 20190222
  Receipt Date: 20190705
  Transmission Date: 20191004
  Serious: Yes (Hospitalization, Other)
  Sender: FDA-Public Use
  Company Number: US-BIOVITRUM-2019US0328

PATIENT
  Age: 8 Year
  Sex: Male
  Weight: 20.7 kg

DRUGS (1)
  1. KINERET [Suspect]
     Active Substance: ANAKINRA
     Indication: CHRONIC INFANTILE NEUROLOGICAL CUTANEOUS AND ARTICULAR SYNDROME
     Dosage: DOSE, UNITS REPORTED AS: (119 MG) 0.8 ML
     Route: 058
     Dates: start: 20111114

REACTIONS (4)
  - Cerebrospinal fluid leakage [Recovered/Resolved]
  - Abdominal pain [Recovered/Resolved]
  - Post lumbar puncture syndrome [Recovered/Resolved]
  - Pyrexia [Recovered/Resolved]

NARRATIVE: CASE EVENT DATE: 20180126
